FAERS Safety Report 9333373 (Version 1)
Quarter: 2013Q2

REPORT INFORMATION
  Report Type: Spontaneous
  Country: US (occurrence: US)
  Receive Date: 20130606
  Receipt Date: 20130606
  Transmission Date: 20140414
  Serious: No
  Sender: FDA-Public Use
  Company Number: US-LEHIGH_VALLEY-USA-2012POI058000055

PATIENT
  Age: 43 Year
  Sex: Male

DRUGS (1)
  1. OXYCODONE HCL ORAL SOLUTION [Suspect]
     Indication: PAIN
     Dates: start: 20120321, end: 20120321

REACTIONS (3)
  - Accidental overdose [Recovered/Resolved]
  - Dizziness [Recovered/Resolved]
  - Drug administration error [Recovered/Resolved]
